FAERS Safety Report 25630139 (Version 3)
Quarter: 2025Q3

REPORT INFORMATION
  Report Type: Report from Study
  Country: US (occurrence: US)
  Receive Date: 20250801
  Receipt Date: 20250919
  Transmission Date: 20251020
  Serious: No
  Sender: SUNOVION
  Company Number: US-SUMITOMO PHARMA SWITZERLAND GMBH-2025SPA009464

PATIENT
  Age: 64 Year
  Sex: Male

DRUGS (5)
  1. ORGOVYX [Suspect]
     Active Substance: RELUGOLIX
     Indication: Prostate cancer
     Route: 048
     Dates: start: 20250719, end: 20250719
  2. ORGOVYX [Suspect]
     Active Substance: RELUGOLIX
     Route: 048
  3. ATENOLOL [Concomitant]
     Active Substance: ATENOLOL
  4. ATORVASTATIN [Concomitant]
     Active Substance: ATORVASTATIN
  5. TYLENOL [Concomitant]
     Active Substance: ACETAMINOPHEN

REACTIONS (6)
  - Feeling abnormal [Unknown]
  - Gastrointestinal disorder [Unknown]
  - Chills [Unknown]
  - Diarrhoea [Unknown]
  - Fatigue [Unknown]
  - Hot flush [Unknown]
